FAERS Safety Report 9235064 (Version 6)
Quarter: 2014Q2

REPORT INFORMATION
  Report Type: Spontaneous
  Country: US (occurrence: US)
  Receive Date: 20130416
  Receipt Date: 20140604
  Transmission Date: 20141212
  Serious: Yes (Disabling)
  Sender: FDA-Public Use
  Company Number: US-009507513-1304USA003859

PATIENT
  Sex: Male

DRUGS (3)
  1. PROPECIA [Suspect]
     Indication: ANDROGENETIC ALOPECIA
     Dosage: 1 MG, UNK
     Route: 048
     Dates: start: 200309, end: 200604
  2. PROPECIA [Suspect]
     Dosage: 1 MG, UNK
     Route: 048
     Dates: start: 20101228, end: 2012
  3. FINASTERIDE [Suspect]
     Indication: ANDROGENETIC ALOPECIA
     Dosage: 1 MG, UNK
     Route: 048

REACTIONS (23)
  - Back injury [Unknown]
  - Neck injury [Unknown]
  - Back injury [Unknown]
  - Back pain [Not Recovered/Not Resolved]
  - Cognitive disorder [Not Recovered/Not Resolved]
  - Nocturia [Unknown]
  - Urinary retention [Unknown]
  - Hydrocele [Unknown]
  - Testicular injury [Unknown]
  - Spermatocele [Unknown]
  - Fatigue [Unknown]
  - Atrophy [Unknown]
  - Skin hypertrophy [Unknown]
  - Epididymal cyst [Unknown]
  - Orgasmic sensation decreased [Unknown]
  - Blood testosterone decreased [Unknown]
  - Blood urea increased [Unknown]
  - Blood creatinine increased [Unknown]
  - Sexual dysfunction [Not Recovered/Not Resolved]
  - Depression [Unknown]
  - Semen volume decreased [Not Recovered/Not Resolved]
  - Testicular pain [Not Recovered/Not Resolved]
  - Erectile dysfunction [Not Recovered/Not Resolved]
